FAERS Safety Report 24435809 (Version 2)
Quarter: 2024Q4

REPORT INFORMATION
  Report Type: Spontaneous
  Country: JP (occurrence: JP)
  Receive Date: 20241015
  Receipt Date: 20241024
  Transmission Date: 20250114
  Serious: Yes (Other)
  Sender: AMGEN
  Company Number: JP-DSJP-DSJ-2024-142924

PATIENT
  Age: 74 Year
  Sex: Female

DRUGS (7)
  1. BEVACIZUMAB [Suspect]
     Active Substance: BEVACIZUMAB
     Indication: Invasive breast carcinoma
     Dosage: 450 MILLIGRAM
     Route: 041
     Dates: start: 20240711, end: 20240711
  2. BEVACIZUMAB [Suspect]
     Active Substance: BEVACIZUMAB
     Dosage: 450 MILLIGRAM
     Route: 041
     Dates: start: 20240725, end: 20240725
  3. BEVACIZUMAB [Suspect]
     Active Substance: BEVACIZUMAB
     Dosage: 450 MILLIGRAM
     Route: 041
     Dates: start: 20240815, end: 20240815
  4. BEVACIZUMAB [Suspect]
     Active Substance: BEVACIZUMAB
     Dosage: 450 MILLIGRAM
     Route: 041
     Dates: start: 20240905, end: 20240905
  5. BEVACIZUMAB [Suspect]
     Active Substance: BEVACIZUMAB
     Dosage: 450 MILLIGRAM
     Route: 041
     Dates: start: 20240926, end: 20240926
  6. PACLITAXEL [Concomitant]
     Active Substance: PACLITAXEL
     Indication: Invasive breast carcinoma
     Dosage: UNK, QWK (125MG/BODY, ONCE EVERY 1 WK )
     Route: 040
     Dates: start: 20240711, end: 20240725
  7. PACLITAXEL [Concomitant]
     Active Substance: PACLITAXEL
     Dosage: UNK, QWK  90MG/BODY, ONCE EVERY 1 WK
     Route: 040
     Dates: start: 20240815

REACTIONS (1)
  - Deafness unilateral [Unknown]

NARRATIVE: CASE EVENT DATE: 20240818
